FAERS Safety Report 21055883 (Version 2)
Quarter: 2022Q3

REPORT INFORMATION
  Report Type: Report from Study
  Country: US (occurrence: US)
  Receive Date: 20220708
  Receipt Date: 20220718
  Transmission Date: 20221027
  Serious: Yes (Hospitalization, Other)
  Sender: FDA-Public Use
  Company Number: US-ABBVIE-22K-163-4460722-00

PATIENT
  Age: 65 Year
  Sex: Female
  Weight: 74.456 kg

DRUGS (10)
  1. HUMIRA [Suspect]
     Active Substance: ADALIMUMAB
     Indication: Psoriatic arthropathy
     Dosage: CITRATE FREE
     Route: 058
     Dates: end: 202204
  2. HUMIRA [Suspect]
     Active Substance: ADALIMUMAB
     Indication: Rheumatoid arthritis
  3. MELOXICAM [Concomitant]
     Active Substance: MELOXICAM
     Indication: Antiinflammatory therapy
  4. CITALOPRAM [Concomitant]
     Active Substance: CITALOPRAM HYDROBROMIDE
     Indication: Anxiolytic therapy
  5. BUSPAR [Concomitant]
     Active Substance: BUSPIRONE HYDROCHLORIDE
     Indication: Anxiolytic therapy
  6. COVID-19 VACCINE [Concomitant]
     Indication: COVID-19 immunisation
     Dosage: MODERNA
     Route: 030
     Dates: start: 2021, end: 2021
  7. COVID-19 VACCINE [Concomitant]
     Dosage: MODERNA
     Route: 030
     Dates: start: 2021, end: 2021
  8. COVID-19 VACCINE [Concomitant]
     Dosage: MODERNA
     Route: 030
     Dates: start: 2021, end: 2021
  9. FUROSEMIDE [Concomitant]
     Active Substance: FUROSEMIDE
     Indication: Diuretic therapy
  10. TIZANIDINE [Concomitant]
     Active Substance: TIZANIDINE
     Indication: Muscle relaxant therapy

REACTIONS (7)
  - Malaise [Unknown]
  - Necrotising fasciitis [Recovering/Resolving]
  - Necrosis [Unknown]
  - Joint swelling [Recovered/Resolved with Sequelae]
  - Immune system disorder [Recovering/Resolving]
  - Diarrhoea [Recovered/Resolved]
  - Post procedural complication [Recovering/Resolving]

NARRATIVE: CASE EVENT DATE: 20220401
